FAERS Safety Report 25864581 (Version 1)
Quarter: 2025Q3

REPORT INFORMATION
  Report Type: Spontaneous
  Country: EU (occurrence: EU)
  Receive Date: 20250930
  Receipt Date: 20250930
  Transmission Date: 20251020
  Serious: Yes (Hospitalization)
  Sender: PFIZER
  Company Number: None

PATIENT
  Age: 76 Year
  Sex: Male
  Weight: 96 kg

DRUGS (9)
  1. ATRACURIUM BESYLATE [Suspect]
     Active Substance: ATRACURIUM BESYLATE
     Indication: Anaesthesia
     Route: 042
     Dates: start: 20250827, end: 20250827
  2. VISIPAQUE [Suspect]
     Active Substance: IODIXANOL
     Indication: Portal vein embolisation
     Route: 042
     Dates: start: 20250827, end: 20250827
  3. LIPIODOL [Suspect]
     Active Substance: ETHIODIZED OIL
     Indication: Portal vein embolisation
     Route: 042
     Dates: start: 20250827, end: 20250827
  4. TRAMADOL HCL [Suspect]
     Active Substance: TRAMADOL HYDROCHLORIDE
     Indication: Anaesthesia
     Route: 042
     Dates: start: 20250827, end: 20250827
  5. KETOPROFEN [Suspect]
     Active Substance: KETOPROFEN
     Indication: Anaesthesia
     Route: 042
     Dates: start: 20250827, end: 20250827
  6. DEXAMETHASONE [Suspect]
     Active Substance: DEXAMETHASONE
     Indication: Anaesthesia
     Route: 042
     Dates: start: 20250827, end: 20250827
  7. SUFENTANIL [Suspect]
     Active Substance: SUFENTANIL
     Indication: Anaesthesia
     Route: 042
     Dates: start: 20250827, end: 20250827
  8. ACETAMINOPHEN [Suspect]
     Active Substance: ACETAMINOPHEN
     Indication: Anaesthesia
     Route: 042
     Dates: start: 20250827, end: 20250827
  9. PROPOFOL [Suspect]
     Active Substance: PROPOFOL
     Indication: Anaesthesia
     Route: 042
     Dates: start: 20250827, end: 20250827

REACTIONS (1)
  - Drug reaction with eosinophilia and systemic symptoms [Recovered/Resolved]

NARRATIVE: CASE EVENT DATE: 20250903
